FAERS Safety Report 10358070 (Version 2)
Quarter: 2014Q3

REPORT INFORMATION
  Report Type: Report from Study
  Country: AT (occurrence: AT)
  Receive Date: 20140801
  Receipt Date: 20140818
  Transmission Date: 20150326
  Serious: Yes (Hospitalization)
  Sender: FDA-Public Use
  Company Number: AT-US-EMD SERONO, INC.-7310032

PATIENT
  Sex: Male
  Weight: 70 kg

DRUGS (3)
  1. REBIF [Suspect]
     Active Substance: INTERFERON BETA-1A
     Indication: MULTIPLE SCLEROSIS
     Dosage: PRE FILLED SYRRINGES
     Route: 058
     Dates: start: 2004, end: 2009
  2. NAPROXEN. [Concomitant]
     Active Substance: NAPROXEN
     Indication: PRODUCT USED FOR UNKNOWN INDICATION
  3. REBIF [Suspect]
     Active Substance: INTERFERON BETA-1A
     Route: 058
     Dates: start: 20101209

REACTIONS (9)
  - Platelet disorder [Recovered/Resolved]
  - Inflammation [Recovered/Resolved]
  - Chills [Unknown]
  - Lack of injection site rotation [Unknown]
  - Soft tissue disorder [Unknown]
  - Metaplasia [Unknown]
  - Injection site induration [Recovered/Resolved]
  - Multiple sclerosis relapse [Unknown]
  - Pain in extremity [Recovered/Resolved]

NARRATIVE: CASE EVENT DATE: 2006
